FAERS Safety Report 9925011 (Version 2)
Quarter: 2014Q3

REPORT INFORMATION
  Report Type: Spontaneous
  Country: NL (occurrence: None)
  Receive Date: 20140221
  Receipt Date: 20140811
  Transmission Date: 20150326
  Serious: Yes (Other)
  Sender: FDA-Public Use
  Company Number: 2014NL0057

PATIENT
  Age: 68 Year
  Sex: Female

DRUGS (3)
  1. ANAKINRA (ANAKINRA) [Suspect]
     Active Substance: ANAKINRA
     Indication: BENIGN INTRACRANIAL HYPERTENSION
  2. ANAKINRA (ANAKINRA) [Suspect]
     Active Substance: ANAKINRA
     Indication: MALAISE
  3. ANAKINRA (ANAKINRA) [Suspect]
     Active Substance: ANAKINRA
     Indication: INFLAMMATION

REACTIONS (3)
  - Myelodysplastic syndrome [None]
  - Neutropenia [None]
  - Paraneoplastic syndrome [None]
